FAERS Safety Report 6921339-1 (Version None)
Quarter: 2010Q3

REPORT INFORMATION
  Report Type: 
  Country: None (occurrence: None)
  Receive Date: 20100812
  Receipt Date: 20100729
  Transmission Date: 20110219
  Serious: Yes (Hospitalization)
  Sender: FDA-Public Use
  Company Number: US-ELI_LILLY_AND_COMPANY-US201008000205

PATIENT
  Age: 54 Year
  Sex: Female

DRUGS (3)
  1. ZYPREXA [Suspect]
     Indication: SCHIZOAFFECTIVE DISORDER BIPOLAR TYPE
     Dosage: 15 MG, UNKNOWN
     Route: 065
  2. ZYPREXA [Suspect]
     Dosage: 20 MG, UNKNOWN
     Route: 065
  3. DEPAKOTE [Concomitant]

REACTIONS (4)
  - DRUG INEFFECTIVE [None]
  - MANIA [None]
  - SCHIZOAFFECTIVE DISORDER BIPOLAR TYPE [None]
  - WEIGHT INCREASED [None]
